FAERS Safety Report 23409869 (Version 4)
Quarter: 2024Q1

REPORT INFORMATION
  Report Type: Spontaneous
  Country: US (occurrence: US)
  Receive Date: 20240117
  Receipt Date: 20240221
  Transmission Date: 20240410
  Serious: No
  Sender: FDA-Public Use
  Company Number: US-PFIZER INC-202300456678

PATIENT
  Age: 15 Year
  Sex: Female
  Weight: 37.19 kg

DRUGS (2)
  1. GENOTROPIN [Suspect]
     Active Substance: SOMATROPIN
     Indication: Turner^s syndrome
     Dosage: UNK
     Dates: start: 20231222
  2. ESTRADIOL [Concomitant]
     Active Substance: ESTRADIOL
     Indication: Turner^s syndrome
     Dosage: 0.12 MG, DAILY

REACTIONS (4)
  - Injection site pain [Unknown]
  - Device issue [Unknown]
  - Product reconstitution quality issue [Unknown]
  - Liquid product physical issue [Unknown]

NARRATIVE: CASE EVENT DATE: 20231201
